FAERS Safety Report 7767549-5 (Version None)
Quarter: 2011Q3

REPORT INFORMATION
  Report Type: 
  Country: None (occurrence: None)
  Receive Date: 20110922
  Receipt Date: 20110914
  Transmission Date: 20111222
  Serious: Yes (Hospitalization, Other)
  Sender: FDA-Public Use
  Company Number: US-ASTELLAS-2011US005311

PATIENT

DRUGS (7)
  1. SEROQUEL [Concomitant]
     Indication: BIPOLAR DISORDER
     Dosage: UNK
     Route: 065
  2. LOSARTAN POTASSIUM [Concomitant]
     Indication: CARDIAC DISORDER
     Dosage: 25 MG, UID/QD
     Route: 048
  3. SIMVASTATIN [Concomitant]
     Indication: BLOOD CHOLESTEROL
     Dosage: 20 MG, UID/QD
     Route: 048
  4. LEVOTHYROXINE SODIUM [Concomitant]
     Indication: THYROID DISORDER
     Dosage: 0.5 MG, UID/QD
     Route: 048
  5. PROGRAF [Suspect]
     Indication: LIVER TRANSPLANT
     Dosage: 1.5 MG, BID
     Route: 048
     Dates: start: 20041213
  6. METOPROLOL TARTRATE [Concomitant]
     Indication: BLOOD CHOLESTEROL
     Dosage: 25 MG, BID
     Route: 048
  7. AMBIEN [Concomitant]
     Indication: SLEEP DISORDER
     Dosage: 6 MG, UID/QD
     Route: 048

REACTIONS (6)
  - MEMORY IMPAIRMENT [None]
  - DEHYDRATION [None]
  - LOSS OF CONSCIOUSNESS [None]
  - INSOMNIA [None]
  - CONVULSION [None]
  - DECREASED APPETITE [None]
